FAERS Safety Report 6231771-X (Version None)
Quarter: 2009Q2

REPORT INFORMATION
  Report Type: 
  Country: None (occurrence: None)
  Receive Date: 20090616
  Receipt Date: 20090604
  Transmission Date: 20091009
  Serious: Yes (Death, Other)
  Sender: FDA-Public Use
  Company Number: PHHY2009IT21902

PATIENT
  Age: 59 Year
  Sex: Male

DRUGS (6)
  1. CYCLOSPORINE [Suspect]
     Indication: LUNG TRANSPLANT
     Dosage: TROUGH LEVEL TARGET 80-120 NG/ML
     Dates: start: 20050301
  2. THYMOGLOBULIN [Suspect]
     Indication: LUNG TRANSPLANT
     Dosage: 5 MG/KG, UNK
  3. PREDNISONE [Suspect]
     Indication: LUNG TRANSPLANT
     Dosage: 0.25 MG/KG/DAY
     Dates: start: 20050301
  4. VANCOMYCIN HCL [Concomitant]
     Indication: ANTIBIOTIC PROPHYLAXIS
  5. CEFTAZIDIME [Concomitant]
     Indication: ANTIBIOTIC PROPHYLAXIS
  6. FLUCONAZOLE [Concomitant]
     Indication: ANTIFUNGAL PROPHYLAXIS
     Dosage: 200 MG/DAY

REACTIONS (11)
  - ASTHENIA [None]
  - BACTERIAL INFECTION [None]
  - BRONCHOPNEUMONIA [None]
  - CITROBACTER INFECTION [None]
  - CYTOMEGALOVIRUS INFECTION [None]
  - DISEASE RECURRENCE [None]
  - DYSPNOEA EXERTIONAL [None]
  - FUNGAL INFECTION [None]
  - PURULENT DISCHARGE [None]
  - STAPHYLOCOCCAL INFECTION [None]
  - STENOTROPHOMONAS INFECTION [None]
